FAERS Safety Report 14788861 (Version 1)
Quarter: 2018Q2

REPORT INFORMATION
  Report Type: Other
  Country: IT (occurrence: IT)
  Receive Date: 20180423
  Receipt Date: 20180423
  Transmission Date: 20180711
  Serious: Yes (Other)
  Sender: FDA-Public Use
  Company Number: IT-APOTEX-2018AP010718

PATIENT
  Age: 60 Year
  Sex: Male

DRUGS (8)
  1. DELORAZEPAM [Suspect]
     Active Substance: DELORAZEPAM
     Indication: INTENTIONAL SELF-INJURY
     Dosage: 2 MG, IN TOTAL
     Route: 048
     Dates: start: 20170222, end: 20170222
  2. FLUNOX [Concomitant]
     Active Substance: FLURAZEPAM HYDROCHLORIDE
     Indication: PRODUCT USED FOR UNKNOWN INDICATION
     Dosage: 30 MG, UNK
     Route: 048
     Dates: start: 20070101, end: 20170221
  3. PAROXETINE. [Suspect]
     Active Substance: PAROXETINE
     Indication: INTENTIONAL SELF-INJURY
     Dosage: 60 MG, IN TOTAL (3 TABLETS)
     Route: 048
     Dates: start: 20170222, end: 20170222
  4. PANTORC [Concomitant]
     Active Substance: PANTOPRAZOLE SODIUM
     Indication: PRODUCT USED FOR UNKNOWN INDICATION
     Dosage: 20 MG, UNK
     Route: 048
     Dates: start: 20070101, end: 20170221
  5. CARDIOASPIRIN [Concomitant]
     Active Substance: ASPIRIN
     Indication: PRODUCT USED FOR UNKNOWN INDICATION
     Dosage: 100 MG, UNK
     Route: 048
     Dates: start: 20070101, end: 20170221
  6. FLURAZEPAM MONOHYDROCHLORIDE [Concomitant]
     Active Substance: FLURAZEPAM MONOHYDROCHLORIDE
     Indication: PRODUCT USED FOR UNKNOWN INDICATION
     Dosage: 30 MG, UNK
     Route: 048
     Dates: start: 20070101, end: 20170222
  7. METFORMIN HYDROCHLORIDE. [Suspect]
     Active Substance: METFORMIN HYDROCHLORIDE
     Indication: INTENTIONAL SELF-INJURY
     Dosage: 1000 MG, IN TOTAL (1 TABLET)
     Route: 048
     Dates: start: 20170222, end: 20170222
  8. BIVIS [Concomitant]
     Active Substance: AMLODIPINE BESYLATE\OLMESARTAN MEDOXOMIL
     Indication: PRODUCT USED FOR UNKNOWN INDICATION
     Dosage: 1 DF, UNK
     Route: 048
     Dates: start: 20070101, end: 20170221

REACTIONS (4)
  - Drug abuse [Unknown]
  - Depression [Recovering/Resolving]
  - Anxiety [Recovering/Resolving]
  - Intentional self-injury [Recovering/Resolving]

NARRATIVE: CASE EVENT DATE: 20170222
